FAERS Safety Report 5764535-1 (Version None)
Quarter: 2008Q2

REPORT INFORMATION
  Report Type: 
  Country: None (occurrence: None)
  Receive Date: 20080610
  Receipt Date: 20080529
  Transmission Date: 20081010
  Serious: Yes (Hospitalization, Congenital Anomaly)
  Sender: FDA-Public Use
  Company Number: FR-PFIZER INC-2008046376

PATIENT
  Sex: Male
  Weight: 1.23 kg

DRUGS (7)
  1. CYTOTEC [Suspect]
     Indication: ABORTION INDUCED
     Dosage: TEXT:4 DF-FREQ:ONE INTAKE
     Route: 064
  2. METRONIDAZOLE TABLET [Suspect]
  3. KETOPROFEN [Suspect]
     Dosage: TEXT:1 DF-FREQ:ONE INTAKE
     Route: 064
  4. AMOXICILLIN [Suspect]
  5. MIFEGYNE [Suspect]
     Indication: ABORTION INDUCED
     Dosage: TEXT:1 DF-FREQ:ONE INTAKE
     Route: 064
  6. LOXEN [Suspect]
  7. CELESTONE [Suspect]

REACTIONS (4)
  - CEREBRAL HAEMORRHAGE [None]
  - DRUG EXPOSURE DURING PREGNANCY [None]
  - NECROTISING ENTEROCOLITIS NEONATAL [None]
  - NEONATAL RESPIRATORY DISTRESS SYNDROME [None]
